FAERS Safety Report 19126291 (Version 1)
Quarter: 2021Q2

REPORT INFORMATION
  Report Type: Spontaneous
  Country: AU (occurrence: AU)
  Receive Date: 20210413
  Receipt Date: 20210413
  Transmission Date: 20210717
  Serious: Yes (Disabling)
  Sender: FDA-Public Use
  Company Number: None

PATIENT
  Age: 22 Year
  Sex: Male
  Weight: 85 kg

DRUGS (1)
  1. FINASTERIDE. [Suspect]
     Active Substance: FINASTERIDE
     Indication: ANDROGENETIC ALOPECIA
     Dates: start: 20180901, end: 20181024

REACTIONS (10)
  - Fatigue [None]
  - Exercise tolerance decreased [None]
  - Hypospermia [None]
  - Oligospermia [None]
  - Disturbance in attention [None]
  - Hyperresponsive to stimuli [None]
  - Feeling abnormal [None]
  - Testicular atrophy [None]
  - Loss of libido [None]
  - Memory impairment [None]

NARRATIVE: CASE EVENT DATE: 20181024
